FAERS Safety Report 9747379 (Version 1)
Quarter: 2013Q4

REPORT INFORMATION
  Report Type: Spontaneous
  Country: US (occurrence: US)
  Receive Date: 20131212
  Receipt Date: 20131212
  Transmission Date: 20140711
  Serious: No
  Sender: FDA-Public Use
  Company Number: US-BIOGENIDEC-2013BI116387

PATIENT
  Age: 58 Year
  Sex: Female

DRUGS (2)
  1. TYSABRI [Suspect]
     Indication: MULTIPLE SCLEROSIS
     Route: 042
     Dates: start: 2005
  2. AVONEX [Concomitant]
     Indication: MULTIPLE SCLEROSIS
     Route: 030
     Dates: start: 20010322

REACTIONS (7)
  - Throat irritation [Not Recovered/Not Resolved]
  - Rhinorrhoea [Recovered/Resolved]
  - General symptom [Recovered/Resolved]
  - Nasopharyngitis [Recovered/Resolved]
  - Speech disorder [Recovered/Resolved]
  - Bronchitis [Recovered/Resolved]
  - Oropharyngeal pain [Not Recovered/Not Resolved]
